FAERS Safety Report 7988676 (Version 2)
Quarter: 2012Q4

REPORT INFORMATION
  Report Type: 
  Country: CA (occurrence: CA)
  Receive Date: 20110613
  Receipt Date: 20121016
  Transmission Date: 20130627
  Serious: Yes (Other)
  Sender: FDA-Public Use
  Company Number: PHHO2005CA13703

PATIENT
  Sex: Male

DRUGS (8)
  1. SANDOSTATIN LAR (PATIENT BASIS) [Suspect]
     Indication: CARCINOID TUMOUR
     Dosage: 20 mg, Every 4 weeks
     Dates: start: 20050505
  2. ALLOPURINOL [Concomitant]
  3. DIGOXIN [Concomitant]
  4. ASA [Concomitant]
  5. LASIX [Concomitant]
  6. METOPROLOL TARTRATE [Concomitant]
  7. VITALUX [Concomitant]
  8. ZOCOR [Concomitant]

REACTIONS (3)
  - Neoplasm malignant [Unknown]
  - Bradycardia [Unknown]
  - Hypotension [Unknown]
